FAERS Safety Report 7586135-3 (Version None)
Quarter: 2011Q3

REPORT INFORMATION
  Report Type: 
  Country: None (occurrence: None)
  Receive Date: 20110701
  Receipt Date: 20110620
  Transmission Date: 20111222
  Serious: Yes (Hospitalization)
  Sender: FDA-Public Use
  Company Number: US-SANOFI-AVENTIS-2011SA027736

PATIENT
  Age: 76 Year
  Sex: Male
  Weight: 100 kg

DRUGS (17)
  1. ALLEGRA [Concomitant]
  2. COLD RELIEF [Concomitant]
  3. HYDROCORTISONE [Concomitant]
  4. CITALOPRAM HYDROBROMIDE [Concomitant]
  5. FINASTERIDE [Concomitant]
  6. MULTI-VITAMINS [Concomitant]
  7. TICLOPIDINE HCL [Concomitant]
  8. SAW PALMETTO [Concomitant]
  9. LOVENOX [Concomitant]
  10. OXYCODONE HYDROCHLORIDE [Concomitant]
  11. DRONEDARONE HCL [Suspect]
     Indication: ATRIAL FIBRILLATION
     Route: 048
     Dates: start: 20101206, end: 20110425
  12. NIACIN [Concomitant]
  13. METOPROLOL TARTRATE [Concomitant]
  14. NITROGLYCERIN [Concomitant]
  15. GUAIFENESIN [Concomitant]
  16. DOXAZOSIN MESYLATE [Concomitant]
  17. WARFARIN SODIUM [Concomitant]
     Dosage: 40.5MG WEEKLY

REACTIONS (2)
  - UPPER LIMB FRACTURE [None]
  - SYNCOPE [None]
